FAERS Safety Report 11422095 (Version 1)
Quarter: 2015Q3

REPORT INFORMATION
  Report Type: Spontaneous
  Country: IT (occurrence: IT)
  Receive Date: 20150827
  Receipt Date: 20150827
  Transmission Date: 20151125
  Serious: Yes (Hospitalization)
  Sender: FDA-Public Use
  Company Number: IT-ACCORD-033320

PATIENT
  Age: 61 Year
  Sex: Female

DRUGS (1)
  1. TACROLIMUS. [Suspect]
     Active Substance: TACROLIMUS
     Indication: IMMUNOSUPPRESSANT DRUG THERAPY

REACTIONS (6)
  - Meningitis [Recovering/Resolving]
  - Endocarditis [Recovering/Resolving]
  - Intervertebral discitis [Recovering/Resolving]
  - Eye infection [Unknown]
  - Pneumococcal infection [Unknown]
  - Muscle abscess [Unknown]
